FAERS Safety Report 5868758-2 (Version None)
Quarter: 2008Q3

REPORT INFORMATION
  Report Type: 
  Country: None (occurrence: None)
  Receive Date: 20080828
  Receipt Date: 20080818
  Transmission Date: 20090109
  Serious: Yes (Hospitalization)
  Sender: FDA-Public Use
  Company Number: 2008PV036487

PATIENT
  Age: 51 Year
  Sex: Female
  Weight: 63.5036 kg

DRUGS (14)
  1. SYMLIN [Suspect]
     Indication: TYPE 2 DIABETES MELLITUS
     Dosage: 60 MCG; ;SC
     Route: 058
     Dates: start: 20080601
  2. LEVEMIR [Concomitant]
  3. NOVOLOG [Concomitant]
  4. ISOSORBIDE [Concomitant]
  5. ZOCOR [Concomitant]
  6. PLAVIX [Concomitant]
  7. CYMBALTA [Concomitant]
  8. HYDROXYZINE [Concomitant]
  9. DARVOCET [Concomitant]
  10. PROMETHAZINE [Concomitant]
  11. ALBUTEROL [Concomitant]
  12. METAPROTERENOL [Concomitant]
  13. LISINOPRIL [Concomitant]
  14. NORVASC [Concomitant]

REACTIONS (4)
  - BLOOD GLUCOSE INCREASED [None]
  - HYPERTENSION [None]
  - MYOCARDIAL INFARCTION [None]
  - WRONG TECHNIQUE IN DRUG USAGE PROCESS [None]
